FAERS Safety Report 23133010 (Version 2)
Quarter: 2023Q4

REPORT INFORMATION
  Report Type: Spontaneous
  Country: DE (occurrence: DE)
  Receive Date: 20231101
  Receipt Date: 20231102
  Transmission Date: 20240110
  Serious: Yes (Hospitalization)
  Sender: FDA-Public Use
  Company Number: DE-BAXTER-2023BAX029888

PATIENT
  Age: 76 Year
  Sex: Male
  Weight: 78 kg

DRUGS (51)
  1. BISOPROLOL [Suspect]
     Active Substance: BISOPROLOL\BISOPROLOL FUMARATE
     Indication: Product used for unknown indication
     Dosage: 1.25 MILLIGRAM, ONCE A DAY (1.25 MG PIECE ONCE IN THE EVENING )
     Route: 048
  2. OXYCODONE [Suspect]
     Active Substance: OXYCODONE
     Indication: Product used for unknown indication
     Dosage: (RET.) 5 MG (IF NEEDED: 1 PIECE IN CASE OF PAIN. PER INTAKE, MAX. EVERY 24 H 3.PCS.)
     Route: 048
  3. FENTANYL TRANSDERMAL SYSTEM [Suspect]
     Active Substance: FENTANYL
     Indication: Product used for unknown indication
     Dosage: 12.5 MICROGRAM/HOUR (12.5 MICROGRAM PER HOUR, PLEASE DISCONTINUE)
     Route: 065
     Dates: end: 20230814
  4. FENTANYL TRANSDERMAL SYSTEM [Suspect]
     Active Substance: FENTANYL
     Dosage: 12 MICROGRAM/HOUR ((1A PHARMA 12 UG/H MATRIXPFL 2.89MG/PF) (DOSAGE FORM: PATCH) CHANGE EVRY 3 DAYS)
     Route: 065
  5. FENTANYL TRANSDERMAL SYSTEM [Suspect]
     Active Substance: FENTANYL
     Dosage: 25 MICROGRAM/HOUR ((1A PHARMA 25 UG/H MATRIXPFL 5.78 MG/PF) (DOSAGE FORM: PATCH) CHANGE EVERY 3 DAYS
     Route: 065
  6. FENTANYL TRANSDERMAL SYSTEM [Suspect]
     Active Substance: FENTANYL
     Dosage: UNK ((OUTLET TRIAL WITH FENTANYL PATCH))
     Route: 065
  7. ELECTROLYTES NOS\MINERALS [Suspect]
     Active Substance: ELECTROLYTES NOS\MINERALS
     Indication: Parenteral nutrition
     Dosage: UNK (LABORATOIRE AGUETTANT S.A.S.) AT AN UNSPECIFIED DOSE ONCE IN THE MORNING AS SHORT INFUSION)
     Route: 042
  8. PROMETHAZINE [Suspect]
     Active Substance: PROMETHAZINE HYDROCHLORIDE
     Indication: Product used for unknown indication
     Dosage: 10 DROP, ONCE A DAY ((NEURAXPHARM) 10 DROPS AT NIGHT (DOSAGE FORM: DROP))
     Route: 065
  9. SODIUM PICOSULFATE [Suspect]
     Active Substance: SODIUM PICOSULFATE
     Indication: Laxative supportive care
     Dosage: 18 DROP ((LAXATIVE) FROM 3 DAY NO BOVEL MOVEMENT 18 DROPS)
     Route: 065
  10. AMINO ACIDS\DEXTROSE\ELECTROLYTES NOS\SOYBEAN OIL [Suspect]
     Active Substance: AMINO ACIDS\DEXTROSE\ELECTROLYTES NOS\SOYBEAN OIL
     Indication: Parenteral nutrition
     Dosage: UNK
     Route: 065
  11. TAVOR (LORAZEPAM) [Suspect]
     Active Substance: LORAZEPAM
     Indication: Product used for unknown indication
     Dosage: UNK
     Route: 065
  12. LEVOTHYROXINE SODIUM [Suspect]
     Active Substance: LEVOTHYROXINE SODIUM
     Indication: Product used for unknown indication
     Dosage: 50 MICROGRAM, ONCE A DAY (50 MICROGRAM (50 HENNING) ONE PIECE IN THE MORNING)
     Route: 048
  13. METFORMIN HYDROCHLORIDE [Suspect]
     Active Substance: METFORMIN HYDROCHLORIDE
     Indication: Product used for unknown indication
     Dosage: 1000 MILLIGRAM, TWO TIMES A DAY (1000 MG (1 A PHARMA) PIECE ONE IN THE MORNING AND ONE IN THE NIGHT
     Route: 048
  14. ASPIRIN [Suspect]
     Active Substance: ASPIRIN
     Indication: Product used for unknown indication
     Dosage: 100 MILLIGRAM, TWO TIMES A DAY (100 MG (1X1), PIECE ONCE IN THE MORNING AND ONCE IN THE NIGHT  )
     Route: 048
  15. MOVICOL [Suspect]
     Active Substance: POLYETHYLENE GLYCOL 3350\POTASSIUM CHLORIDE\SODIUM BICARBONATE\SODIUM CHLORIDE
     Indication: Product used for unknown indication
     Dosage: 1 DOSAGE FORM, ONCE A DAY
     Route: 065
  16. METAMIZOLE [Suspect]
     Active Substance: METAMIZOLE
     Indication: Product used for unknown indication
     Dosage: (1 A PHARMA) EVERY 6 HOURS, FOUR TIMES/DAY
     Route: 065
  17. SODIUM CITRATE\SODIUM LAURYL SULFOACETATE [Suspect]
     Active Substance: SODIUM CITRATE\SODIUM LAURYL SULFOACETATE
     Indication: Product used for unknown indication
     Dosage: (RECTAL SOLUTION ENEMAS)
     Route: 065
  18. ENOXAPARIN SODIUM [Suspect]
     Active Substance: ENOXAPARIN SODIUM
     Indication: Product used for unknown indication
     Dosage: 0.4 MILLIGRAM, ONCE A DAY (0.4 MG ONCE IN THE MORNING AND ONCE IN THE NIGHT, DISCONTINUE IF SUFFICIE
     Route: 065
  19. VITAMIN D3 [Suspect]
     Active Substance: CHOLECALCIFEROL
     Indication: Product used for unknown indication
     Dosage: 1 DOSAGE FORM, 3 TIMES A DAY (DROP ONCE IN THE MORNING, ONCE IN THE NOON AND ONCE IN THE NIGHT (BREA
     Route: 065
  20. VITAMIN D3 [Suspect]
     Active Substance: CHOLECALCIFEROL
     Dosage: 1 UNK, FOUR TIMES/DAY (1 X 4 DAILY)
     Route: 065
  21. VITAMIN D3 [Suspect]
     Active Substance: CHOLECALCIFEROL
     Indication: Product used for unknown indication
     Dosage: 4 DROP, ONCE A DAY (4 DROPS DAILY (= 4.000 INTERNATIONAL UNITS)
     Route: 065
  22. CERNEVIT [Suspect]
     Active Substance: VITAMINS
     Indication: Parenteral nutrition
     Dosage: AT AN UNSPECIFIED DOSE ONCE IN THE MORNING AS SHORT INFUSION
     Route: 042
  23. MAGNESIUM [Suspect]
     Active Substance: MAGNESIUM
     Indication: Product used for unknown indication
     Dosage: (300) PIECE ONCE IN THE NOON (BREAK)
     Route: 065
  24. MAGNESIUM [Suspect]
     Active Substance: MAGNESIUM
     Dosage: 300 MILLIGRAM, ONCE A DAY (300 MG ONCE IN THE NIGHT)
     Route: 048
  25. PANCRELIPASE [Suspect]
     Active Substance: PANCRELIPASE
     Indication: Product used for unknown indication
     Dosage: (PANCREAS POWDER FROM PIG) (25000) PIECE ONCE IN THE MORNING, ONCE IN THE NOON, ONCE IN THE EVENING
     Route: 065
  26. PANCRELIPASE [Suspect]
     Active Substance: PANCRELIPASE
     Dosage: 25000 INTERNATIONAL UNIT, FOUR TIMES/DAY (25000 INTERNATIONAL UNITS, ONCE IN THE MORNING, ONCE IN TH
     Route: 065
  27. PANCRELIPASE [Suspect]
     Active Substance: PANCRELIPASE
     Dosage: (PANCREAS POWDER FROM PIG) (25000) PIECE ONCE IN THE MORNING, ONCE IN THE NOON AND ONCE IN THE EVENI
     Route: 065
  28. CALCIUM CHLORIDE\DEXTROSE\POTASSIUM CHLORIDE\SODIUM CHLORIDE [Suspect]
     Active Substance: CALCIUM CHLORIDE\DEXTROSE\POTASSIUM CHLORIDE\SODIUM CHLORIDE
     Indication: Parenteral nutrition
     Dosage: 1000 MILLIGRAM (1000 ML ONCE IN THE MORNING DAILY RUN OVER 4-5 H )
     Route: 042
  29. ABSTRAL [Suspect]
     Active Substance: FENTANYL CITRATE
     Indication: Breakthrough pain
     Dosage: 100 MICROGRAM (100 MICROGRAM PIECE)
     Route: 065
  30. ACTRAPID [Suspect]
     Active Substance: INSULIN HUMAN
     Indication: Product used for unknown indication
     Dosage: (INSULIN) (ACCORDING TO PLAN)
     Route: 058
  31. AMINO ACIDS\DEXTROSE\ELECTROLYTES NOS\SOYBEAN OIL [Suspect]
     Active Substance: AMINO ACIDS\DEXTROSE\ELECTROLYTES NOS\SOYBEAN OIL
     Indication: Parenteral nutrition
     Dosage: 2200 KCAL FOR 24 H (MON-FRI) (PERIOPERATIVELY)
     Route: 042
  32. DEXPANTHENOL [Suspect]
     Active Substance: DEXPANTHENOL
     Indication: Product used for unknown indication
     Dosage: ( EYE AND NOSE OINTMENT) SINGLE DOSE ONCE IN THE EVENING
     Route: 065
  33. DEXPANTHENOL [Suspect]
     Active Substance: DEXPANTHENOL
     Dosage: ( EYE OINTMENT) ONCE IN THE NIGHT
     Route: 065
  34. ROBINUL [Suspect]
     Active Substance: GLYCOPYRROLATE
     Indication: Product used for unknown indication
     Dosage: 0.2 MILLIGRAM/MILILITER
     Route: 065
  35. FRESUBIN [Suspect]
     Active Substance: AMINO ACIDS\DEXTROSE\ELECTROLYTES NOS\SOYBEAN OIL\VITAMINS
     Indication: Product used for unknown indication
     Dosage: (ENERGY DRINK MIXED CARTON DRINKING BOTTLE) (DOSAGE FORM: SOLUTION) 2 TIMES DAILY
     Route: 065
  36. MORPHINE [Suspect]
     Active Substance: MORPHINE
     Indication: Product used for unknown indication
     Dosage: 10 MILLIGRAM ((HAMELN 10 MG INJECTION SOLUTION) (DOSAGE FORM: SOLUTION)
     Route: 065
  37. DEXTROSE [Suspect]
     Active Substance: DEXTROSE\DEXTROSE MONOHYDRATE
     Indication: Parenteral nutrition
     Dosage: AT AN UNSPECIFIED DOSE ONCE IN THE MORNING AS SHORT INFUSION
     Route: 042
  38. ESOMEPRAZOLE [Suspect]
     Active Substance: ESOMEPRAZOLE
     Indication: Product used for unknown indication
     Dosage: 40 MILLIGRAM (40 MG PIECE ONCE IN THE AFTERNOON)
     Route: 065
  39. FERRO-SANOL DUODENAL [Suspect]
     Active Substance: FERROUS GLYCINE SULFATE
     Indication: Product used for unknown indication
     Dosage: 100 MILLIGRAM (100 MG (1 X 1))
     Route: 048
  40. VITAMIN B COMPLEX [Suspect]
     Active Substance: CYANOCOBALAMIN\DEXPANTHENOL\NIACINAMIDE\PYRIDOXINE HYDROCHLORIDE\RIBOFLAVIN 5^-PHOSPHATE SODIUM\THIA
     Indication: Product used for unknown indication
     Dosage: PIECE ONCE IN THE MORNING (BREAK)
     Route: 048
  41. PANTOPRAZOLE [Concomitant]
     Active Substance: PANTOPRAZOLE
     Indication: Product used for unknown indication
     Dosage: 40 MILLIGRAM, TWO TIMES A DAY (40 MG TWICE DAILY (1-0-1))
     Route: 065
  42. PREDNISOLONE [Concomitant]
     Active Substance: PREDNISOLONE
     Indication: Product used for unknown indication
     Dosage: 10 MILLIGRAM, ONCE A DAY
     Route: 065
  43. PREDNISOLONE [Concomitant]
     Active Substance: PREDNISOLONE
     Dosage: IN AUG-2021 RECURRENCE AND INITIAL START OF PREDNISOLONE MONOTHERAPY (IN SEP-2021 THERAPY EXTENSION
     Route: 065
  44. PREDNISOLONE [Concomitant]
     Active Substance: PREDNISOLONE
     Dosage: 5 MILLIGRAM, ONCE A DAY
     Route: 065
  45. PREDNISOLONE [Concomitant]
     Active Substance: PREDNISOLONE
     Dosage: 5 MILLIGRAM, ONCE A DAY ((5 MG (GALEN) PIECE ONCE IN THE NIGHT)
     Route: 048
  46. PREDNISOLONE [Concomitant]
     Active Substance: PREDNISOLONE
     Dosage: (DUE TO THE ONGOING REMISSION REDUCED THE PREDNISOLONE FROM 10 MG/DAY TO 5 MG/DAY, THIS DOSAGE WAS M
     Route: 065
     Dates: start: 20230201
  47. SULFASALAZINE [Concomitant]
     Active Substance: SULFASALAZINE
     Indication: Product used for unknown indication
     Dosage: UNK
     Route: 065
  48. FOLIC ACID [Concomitant]
     Active Substance: FOLIC ACID
     Indication: Product used for unknown indication
     Dosage: 10 MILLIGRAM, EVERY WEEK (10 MG/WEEK (24 HOURS AFTER MTX INTAKE) (CURRENTLY PAUSED)
     Route: 065
  49. METHOTREXATE [Concomitant]
     Active Substance: METHOTREXATE
     Indication: Product used for unknown indication
     Dosage: 15 MILLIGRAM, EVERY WEEK(CURRENTLY PAUSED SINCE 09-JUL-2021)
     Route: 058
  50. PREDNISONE [Concomitant]
     Active Substance: PREDNISONE
     Indication: Product used for unknown indication
     Dosage: (2 MG M ALTERED. ACTIVE INGREDIENT RELEASE) (NOTES: 1 X1 TABLET 10 PM)
     Route: 065
  51. PREDNISONE [Concomitant]
     Active Substance: PREDNISONE
     Dosage: 5 MILLIGRAM (5 MG Z. N)
     Route: 065

REACTIONS (10)
  - General physical health deterioration [Unknown]
  - Dehiscence [Unknown]
  - Drug hypersensitivity [Unknown]
  - Tachycardia [Unknown]
  - Body temperature increased [Unknown]
  - Abscess [Recovering/Resolving]
  - Blood pressure decreased [Unknown]
  - Chills [Unknown]
  - Drug intolerance [Unknown]
  - Diarrhoea [Unknown]
